FAERS Safety Report 7128659-9 (Version None)
Quarter: 2010Q4

REPORT INFORMATION
  Report Type: 
  Country: None (occurrence: None)
  Receive Date: 20101130
  Receipt Date: 20101116
  Transmission Date: 20110411
  Serious: Yes (Hospitalization, Other)
  Sender: FDA-Public Use
  Company Number: PHHY2010US70378

PATIENT
  Sex: Female
  Weight: 78.5 kg

DRUGS (15)
  1. EXJADE [Suspect]
     Indication: CHRONIC MYELOID LEUKAEMIA
     Dosage: 500 MG, TID
     Route: 048
     Dates: start: 20101005, end: 20101017
  2. EXJADE [Suspect]
     Indication: IRON OVERLOAD
  3. CORTICOSTEROIDS [Concomitant]
  4. AMBIEN [Concomitant]
     Dosage: 10 MG AT HS
  5. PREDNISONE [Concomitant]
     Dosage: 75 MG, QD
  6. PREDNISONE [Concomitant]
     Dosage: 50 MG DAILY
  7. NEXIUM [Concomitant]
     Dosage: 40 MG, QD
  8. POTASSIUM CHLORIDE [Concomitant]
     Dosage: BID
  9. LISINOPRIL [Concomitant]
     Dosage: 10 NG, QD
  10. VITA-E [Concomitant]
     Dosage: 1000 IU, QD
  11. MULTI-VIT [Concomitant]
     Dosage: QD
  12. OYSTER SHELL CALCIUM WITH VITAMIN D [Concomitant]
     Dosage: 2 DF, QD
  13. PLAVIX [Concomitant]
     Dosage: 75 MG, QD
  14. NORVASC [Concomitant]
     Dosage: 5 MG, QD
  15. SPIRONOLACTONE [Concomitant]
     Dosage: 12.5 MG, QD

REACTIONS (14)
  - ARTHRALGIA [None]
  - BLISTER [None]
  - BLOOD PRESSURE SYSTOLIC INCREASED [None]
  - CHILLS [None]
  - ERYTHEMA [None]
  - GASTROINTESTINAL SOUNDS ABNORMAL [None]
  - HYPERSENSITIVITY [None]
  - JOINT ADHESION [None]
  - MALAISE [None]
  - OEDEMA PERIPHERAL [None]
  - RASH [None]
  - SKIN DISCOLOURATION [None]
  - SWELLING [None]
  - URTICARIA [None]
